FAERS Safety Report 8398150-0 (Version None)
Quarter: 2012Q2

REPORT INFORMATION
  Report Type: 
  Country: None (occurrence: None)
  Receive Date: 20120531
  Receipt Date: 20120525
  Transmission Date: 20120825
  Serious: Yes (Other)
  Sender: FDA-Public Use
  Company Number: GXKR2012DE001430

PATIENT
  Age: 102 Year
  Sex: Female
  Weight: 50 kg

DRUGS (14)
  1. SPIRONOLACTONE [Concomitant]
     Dosage: 25 MG, QD
     Route: 048
     Dates: start: 20120507
  2. TORSEMIDE [Suspect]
     Dosage: 40 MG/DAY
     Dates: start: 20110401, end: 20110501
  3. DIGITOXIN TAB [Concomitant]
     Dates: end: 20110428
  4. TORSEMIDE [Suspect]
     Dosage: 5-10 MG/DAY
     Dates: start: 20110526, end: 20120410
  5. ISOSORBIDE DINITRATE [Concomitant]
     Dosage: 1 DF, BID
     Route: 048
  6. ARANESP [Concomitant]
     Dosage: 40 MG, QW
     Route: 048
  7. TORSEMIDE [Suspect]
  8. FUROSEMIDE [Suspect]
     Indication: DYSPNOEA
     Dosage: 20 MG, QD
     Route: 048
     Dates: start: 20120428, end: 20120506
  9. XIPAMIDE [Concomitant]
     Dosage: 20 MG, QD
     Route: 048
     Dates: start: 20120420
  10. DIOVAN [Concomitant]
     Dosage: 20-40 MG/DAY
     Route: 048
  11. FALITHROM ^FAHLBERG^ [Concomitant]
     Dosage: 1.5 MG, PRN
     Route: 048
  12. REPAGLINIDE [Concomitant]
     Dosage: 0.5 MG, TID
     Route: 048
  13. CARVEDILOL [Concomitant]
     Dates: end: 20110428
  14. TORSEMIDE [Suspect]
     Indication: CARDIAC FAILURE
     Dosage: MAX 60 MG/DAY
     Route: 048
     Dates: start: 20030101, end: 20110401

REACTIONS (5)
  - MENTAL DISORDER [None]
  - PRURITUS [None]
  - SKIN ULCER [None]
  - PAPULE [None]
  - BRADYCARDIA [None]
